FAERS Safety Report 6753741-5 (Version None)
Quarter: 2010Q2

REPORT INFORMATION
  Report Type: 
  Country: None (occurrence: None)
  Receive Date: 20100601
  Receipt Date: 20100518
  Transmission Date: 20101027
  Serious: Yes (Hospitalization)
  Sender: FDA-Public Use
  Company Number: PI-04747

PATIENT

DRUGS (1)
  1. CHLORAPREP WITH TINT [Suspect]
     Indication: THERAPEUTIC SKIN CARE TOPICAL
     Dosage: ONCE, TOPICAL
     Route: 061
     Dates: start: 20100517

REACTIONS (1)
  - THERMAL BURN [None]
